FAERS Safety Report 8495621-3 (Version None)
Quarter: 2012Q3

REPORT INFORMATION
  Report Type: 
  Country: None (occurrence: None)
  Receive Date: 20120709
  Receipt Date: 20120625
  Transmission Date: 20120928
  Serious: Yes (Hospitalization)
  Sender: FDA-Public Use
  Company Number: US-ROCHE-1078508

PATIENT
  Sex: Female
  Weight: 76.726 kg

DRUGS (6)
  1. HERCEPTIN [Suspect]
     Indication: BREAST CANCER
     Route: 042
     Dates: start: 20120502
  2. DOCETAXEL [Suspect]
     Indication: BREAST CANCER
     Route: 042
     Dates: start: 20120502
  3. MOTRIN [Concomitant]
     Indication: PAIN
  4. EXTRA STRENGTH TYLENOL [Concomitant]
     Indication: PAIN
     Route: 048
  5. CARBOPLATIN [Suspect]
     Indication: BREAST CANCER
     Route: 042
     Dates: start: 20120502
  6. DECADRON [Concomitant]
     Indication: PRODUCT USED FOR UNKNOWN INDICATION
     Route: 048

REACTIONS (6)
  - BACK PAIN [None]
  - JOINT SWELLING [None]
  - RENAL STONE REMOVAL [None]
  - HEADACHE [None]
  - PALPITATIONS [None]
  - MYALGIA [None]
